FAERS Safety Report 5400339-7 (Version None)
Quarter: 2007Q3

REPORT INFORMATION
  Report Type: 
  Country: None (occurrence: None)
  Receive Date: 20070730
  Receipt Date: 20070720
  Transmission Date: 20080115
  Serious: Yes (Death, Life-Threatening, Disabling)
  Sender: FDA-Public Use
  Company Number: A0665369A

PATIENT
  Age: 25 Year
  Sex: Male

DRUGS (5)
  1. LAMICTAL [Suspect]
     Dosage: 200MG TWICE PER DAY
     Route: 048
  2. ZOFRAN [Suspect]
     Indication: DRUG USE FOR UNKNOWN INDICATION
     Route: 065
  3. DILANTIN KAPSEAL [Concomitant]
  4. KEPPRA [Concomitant]
  5. LYRICA [Concomitant]

REACTIONS (2)
  - DEATH [None]
  - DRUG TOXICITY [None]
